FAERS Safety Report 4781588-8 (Version None)
Quarter: 2005Q3

REPORT INFORMATION
  Report Type: 
  Country: None (occurrence: None)
  Receive Date: 20050928
  Receipt Date: 20050913
  Transmission Date: 20060218
  Serious: Yes (Other)
  Sender: FDA-Public Use
  Company Number: 200516565US

PATIENT
  Sex: Male

DRUGS (1)
  1. LANTUS [Suspect]
     Dosage: DOSE UNIT: UNITS
     Route: 058

REACTIONS (2)
  - CEREBROVASCULAR ACCIDENT [None]
  - COGNITIVE DISORDER [None]
